FAERS Safety Report 25637147 (Version 1)
Quarter: 2025Q3

REPORT INFORMATION
  Report Type: Report from Study
  Country: CA (occurrence: CA)
  Receive Date: 20250804
  Receipt Date: 20250804
  Transmission Date: 20251020
  Serious: Yes (Hospitalization, Other)
  Sender: TAKEDA
  Company Number: CA-TAKEDA-2025TUS068415

PATIENT
  Age: 58 Year
  Sex: Male

DRUGS (9)
  1. VEDOLIZUMAB [Suspect]
     Active Substance: VEDOLIZUMAB
     Indication: Colitis ulcerative
  2. AMLODIPINE [Concomitant]
     Active Substance: AMLODIPINE BESYLATE
  3. PERINDOPRIL [Concomitant]
     Active Substance: PERINDOPRIL
  4. RANITIDINE [Concomitant]
     Active Substance: RANITIDINE
  5. PANTOPRAZOLE [Concomitant]
     Active Substance: PANTOPRAZOLE
  6. ARIPIPRAZOLE [Concomitant]
     Active Substance: ARIPIPRAZOLE
  7. QUETIAPINE [Concomitant]
     Active Substance: QUETIAPINE
  8. PREDNISONE [Concomitant]
     Active Substance: PREDNISONE
  9. MESALAMINE [Concomitant]
     Active Substance: MESALAMINE

REACTIONS (2)
  - Atrial fibrillation [Recovering/Resolving]
  - Viral pericarditis [Recovering/Resolving]

NARRATIVE: CASE EVENT DATE: 20250711
